FAERS Safety Report 12203219 (Version 1)
Quarter: 2016Q1

REPORT INFORMATION
  Report Type: Spontaneous
  Country: US (occurrence: None)
  Receive Date: 20160321
  Receipt Date: 20160321
  Transmission Date: 20160526
  Serious: Yes (Hospitalization)
  Sender: FDA-Public Use
  Company Number: None

PATIENT
  Age: 60 Year
  Sex: Male

DRUGS (8)
  1. LEVOFLOXACIN. [Suspect]
     Active Substance: LEVOFLOXACIN
     Dosage: 7/21-8/3
  2. PANTOPRAZOLE 40 MG [Suspect]
     Active Substance: PANTOPRAZOLE SODIUM
     Route: 048
  3. ZOSYN [Suspect]
     Active Substance: PIPERACILLIN SODIUM\TAZOBACTAM SODIUM
     Dosage: 8/18
     Route: 042
  4. TIGECYCLINE. [Suspect]
     Active Substance: TIGECYCLINE
     Dosage: 8/19-8/25
     Route: 042
  5. OMEPRAZOLE 40 MG [Suspect]
     Active Substance: OMEPRAZOLE
     Route: 048
  6. CIPROFLOXACIN. [Suspect]
     Active Substance: CIPROFLOXACIN
     Dosage: 8/18-8/25
     Route: 042
  7. BACTRIM [Suspect]
     Active Substance: SULFAMETHOXAZOLE\TRIMETHOPRIM
     Dosage: 200-400 SUSPENSION
     Dates: start: 20150713, end: 20150720
  8. BACTRIM [Suspect]
     Active Substance: SULFAMETHOXAZOLE\TRIMETHOPRIM
     Dosage: 800-1600 TABLET?7/10-7/21

REACTIONS (5)
  - Anaemia [None]
  - Diabetes mellitus [None]
  - Clostridium difficile infection [None]
  - Hypertension [None]
  - Sepsis [None]

NARRATIVE: CASE EVENT DATE: 20150821
